FAERS Safety Report 18660613 (Version 2)
Quarter: 2023Q2

REPORT INFORMATION
  Report Type: Report from Study
  Country: US (occurrence: None)
  Receive Date: 20201223
  Receipt Date: 20230608
  Transmission Date: 20230722
  Serious: Yes (Hospitalization, Disabling)
  Sender: FDA-Public Use
  Company Number: US-MERCK HEALTHCARE KGAA-9179482

PATIENT
  Sex: Female

DRUGS (1)
  1. REBIF [Suspect]
     Active Substance: INTERFERON BETA-1A
     Indication: Multiple sclerosis
     Dosage: PREVIOUSLY REBIJECT II ?REBIF PREFILLED SYRINGE
     Route: 058
     Dates: start: 20060609

REACTIONS (6)
  - Spinal fusion surgery [Unknown]
  - Bedridden [Unknown]
  - Cognitive disorder [Unknown]
  - Mental disorder [Unknown]
  - Suicidal ideation [Unknown]
  - Spinal column injury [Unknown]
